FAERS Safety Report 5869415-9 (Version None)
Quarter: 2008Q3

REPORT INFORMATION
  Report Type: 
  Country: None (occurrence: None)
  Receive Date: 20080828
  Receipt Date: 20080818
  Transmission Date: 20090109
  Serious: Yes (Life-Threatening, Hospitalization, Disabling, Other)
  Sender: FDA-Public Use
  Company Number: S08-FRA-01888-01

PATIENT
  Age: 36 Year
  Sex: Female

DRUGS (1)
  1. DINOPROSTONE (DINOPROSTONE) (10 MILLIGRAM, VAGINAL INSERT) [Suspect]
     Indication: LABOUR INDUCTION
     Dosage: 10 MG (10 MG, ONCE) ,VAGINAL
     Route: 067
     Dates: start: 20080507, end: 20080507

REACTIONS (2)
  - DRUG EXPOSURE DURING PREGNANCY [None]
  - UTERINE RUPTURE [None]
